FAERS Safety Report 7924643-3 (Version None)
Quarter: 2011Q4

REPORT INFORMATION
  Report Type: 
  Country: None (occurrence: None)
  Receive Date: 20111117
  Receipt Date: 20110324
  Transmission Date: 20120403
  Serious: No
  Sender: FDA-Public Use
  Company Number: US-AMGEN-USASP2011015955

PATIENT
  Sex: Female

DRUGS (1)
  1. ENBREL [Suspect]
     Indication: RHEUMATOID ARTHRITIS
     Dates: start: 20070101

REACTIONS (8)
  - PAIN IN EXTREMITY [None]
  - INJECTION SITE PAIN [None]
  - BACK PAIN [None]
  - DRY MOUTH [None]
  - MENOPAUSE [None]
  - ARTHRALGIA [None]
  - INJECTION SITE SWELLING [None]
  - INJECTION SITE URTICARIA [None]
